FAERS Safety Report 15210600 (Version 1)
Quarter: 2018Q3

REPORT INFORMATION
  Report Type: Report from Study
  Country: FR (occurrence: FR)
  Receive Date: 20180728
  Receipt Date: 20180728
  Transmission Date: 20181010
  Serious: Yes (Hospitalization, Other)
  Sender: FDA-Public Use
  Company Number: FR-TEVA-2018-FR-931602

PATIENT

DRUGS (27)
  1. AMOXICILLIN. [Concomitant]
     Active Substance: AMOXICILLIN
     Indication: ANTIBIOTIC THERAPY
     Dosage: 2 G, QD
     Route: 048
     Dates: start: 20141212, end: 20150113
  2. HEPARIN [Concomitant]
     Active Substance: HEPARIN SODIUM
     Indication: PROPHYLAXIS
     Dosage: 45000 IU, QD
     Route: 042
     Dates: start: 20140821, end: 20140910
  3. ALDACTONE [Concomitant]
     Active Substance: SPIRONOLACTONE
     Indication: DIURETIC THERAPY
     Dosage: 50 MG, QD
     Route: 042
     Dates: start: 20140904, end: 20141219
  4. DITROPAN [Concomitant]
     Active Substance: OXYBUTYNIN CHLORIDE
     Indication: URINARY INCONTINENCE
     Dosage: 30 MG, QD
     Route: 048
     Dates: start: 20140909, end: 20141007
  5. FLAGYL [Concomitant]
     Active Substance: METRONIDAZOLE\METRONIDAZOLE HYDROCHLORIDE
     Dosage: 1 G, UNK
     Route: 048
     Dates: start: 20150103, end: 20150113
  6. NOXAFIL [Concomitant]
     Active Substance: POSACONAZOLE
     Indication: ANTIFUNGAL PROPHYLAXIS
     Dosage: 800 MG, QD
     Route: 048
     Dates: start: 20140930, end: 20150224
  7. TIENAM [Concomitant]
     Active Substance: CILASTATIN SODIUM\IMIPENEM
     Indication: ANTIBIOTIC THERAPY
     Dosage: 2700 MG, QD
     Route: 042
     Dates: start: 20140903, end: 20141015
  8. CIFLOX                             /00697201/ [Concomitant]
     Active Substance: CIPROFLOXACIN
     Indication: ANTIBIOTIC THERAPY
     Dosage: 1 G, QD
     Route: 042
     Dates: start: 20141001, end: 20141118
  9. KEPPRA [Concomitant]
     Active Substance: LEVETIRACETAM
     Dosage: 2 G, QD
     Route: 048
     Dates: start: 20140317, end: 20141219
  10. ZOPHREN                            /00955301/ [Concomitant]
     Active Substance: ONDANSETRON
     Indication: ANTIEMETIC SUPPORTIVE CARE
     Dosage: 16 MG, QD
     Route: 048
     Dates: start: 20140915, end: 20141230
  11. ACICLOVIR [Concomitant]
     Active Substance: ACYCLOVIR
     Indication: ANTIVIRAL PROPHYLAXIS
     Dosage: 1050 MG, QD
     Route: 042
     Dates: start: 20140825, end: 20140913
  12. CANCIDAS [Concomitant]
     Active Substance: CASPOFUNGIN ACETATE
     Indication: ANTIFUNGAL PROPHYLAXIS
     Dosage: 50 MG, QD
     Dates: start: 20140908, end: 20140929
  13. BACTRIM [Concomitant]
     Active Substance: SULFAMETHOXAZOLE\TRIMETHOPRIM
     Indication: ANTIBIOTIC THERAPY
     Dosage: 800 MG, TID
     Dates: start: 20141001
  14. CICLOSPORIN [Suspect]
     Active Substance: CYCLOSPORINE
     Indication: PROPHYLAXIS AGAINST GRAFT VERSUS HOST DISEASE
     Dosage: 180 MILLIGRAM DAILY;
     Route: 042
     Dates: start: 20140825, end: 20141128
  15. INEXIUM                            /01479302/ [Concomitant]
     Active Substance: ESOMEPRAZOLE MAGNESIUM
     Indication: PROPHYLAXIS AGAINST GASTROINTESTINAL ULCER
     Dosage: 20 MG, QD
     Route: 048
     Dates: start: 20140425, end: 20141230
  16. ZELITREX [Concomitant]
     Active Substance: VALACYCLOVIR HYDROCHLORIDE
     Indication: ANTIVIRAL PROPHYLAXIS
     Dosage: 1 G, QD
     Route: 048
     Dates: start: 20140926, end: 20150520
  17. KEPPRA [Concomitant]
     Active Substance: LEVETIRACETAM
     Indication: ANTICONVULSANT DRUG LEVEL
     Dosage: 1.5 G, QD
     Dates: start: 20140311
  18. LASILIX                            /00032601/ [Concomitant]
     Active Substance: FUROSEMIDE
     Indication: DIURETIC THERAPY
     Dosage: 80 MG, QD
     Route: 042
     Dates: start: 20140901, end: 20140907
  19. DEFITELIO [Suspect]
     Active Substance: DEFIBROTIDE SODIUM
     Indication: PROPHYLAXIS
     Dosage: 25 MG/KG DAILY;
     Dates: start: 20140821
  20. PLITICAN [Concomitant]
     Active Substance: ALIZAPRIDE HYDROCHLORIDE
     Indication: ANTIEMETIC SUPPORTIVE CARE
     Dosage: 150 MG, QD
     Route: 048
     Dates: start: 20140621, end: 20141203
  21. CELECTOL [Concomitant]
     Active Substance: CELIPROLOL HYDROCHLORIDE
     Indication: HYPOTENSION
     Dosage: 400 MG, QD
     Route: 048
     Dates: start: 20140822, end: 20141127
  22. ADALAT [Concomitant]
     Active Substance: NIFEDIPINE
     Indication: HYPOTENSION
     Dosage: 40 MG, QD
     Route: 048
     Dates: start: 20140821, end: 20140913
  23. LASILIX                            /00032601/ [Concomitant]
     Active Substance: FUROSEMIDE
     Dosage: 40 MG, QD
     Route: 042
     Dates: start: 20140907, end: 20141218
  24. DEFITELIO [Suspect]
     Active Substance: DEFIBROTIDE SODIUM
     Route: 042
     Dates: start: 20140827, end: 20140912
  25. VANCOMYCIN [Concomitant]
     Active Substance: VANCOMYCIN
     Indication: ANTIBIOTIC THERAPY
     Dosage: 1300 MG, QD
     Route: 042
     Dates: start: 20140903, end: 20141007
  26. COLIMYCIN                          /00013203/ [Concomitant]
     Indication: ANTIBIOTIC THERAPY
     Dosage: UNK IU, QD
     Route: 048
     Dates: start: 20141227, end: 20150117
  27. MORPHINE [Concomitant]
     Active Substance: MORPHINE
     Indication: ANALGESIC THERAPY
     Dosage: 139 MG, QD
     Route: 042
     Dates: start: 20140908, end: 20141222

REACTIONS (7)
  - Renal failure [Recovered/Resolved]
  - Hypernatraemia [Recovered/Resolved]
  - Respiratory distress [Recovered/Resolved]
  - Cardiac tamponade [Recovered/Resolved]
  - Fluid overload [Recovered/Resolved]
  - Cystitis haemorrhagic [Recovered/Resolved]
  - Escherichia urinary tract infection [Recovered/Resolved]

NARRATIVE: CASE EVENT DATE: 20140910
